FAERS Safety Report 7803358-6 (Version None)
Quarter: 2011Q4

REPORT INFORMATION
  Report Type: 
  Country: None (occurrence: None)
  Receive Date: 20111007
  Receipt Date: 20110926
  Transmission Date: 20120403
  Serious: Yes (Other)
  Sender: FDA-Public Use
  Company Number: PHHY2011IT86271

PATIENT
  Sex: Male

DRUGS (12)
  1. METFORMIN HYDROCHLORIDE [Concomitant]
     Dosage: UNK UKN, UNK
  2. AMIODARONE HCL [Concomitant]
     Dosage: 200 MG, DAILY
  3. DRAMION [Concomitant]
     Dosage: 30 MG, DAILY
  4. METOPROLOL TARTRATE [Concomitant]
     Dosage: 150 MG, DAILY
  5. VALSARTAN  AND HYDROCHLOROTHIAZIDE [Suspect]
     Dosage: UNK UKN, UNK
     Dates: start: 20100731, end: 20110730
  6. LEVOTHYROXINE SODIUM [Concomitant]
     Dosage: 100 MG, DAILY
  7. GLYCERYL TRINITRATE [Concomitant]
     Dosage: 15 MG DAILY
  8. MINITRAN [Suspect]
     Dosage: 15 MG, UNK
     Route: 062
     Dates: start: 20100731, end: 20110730
  9. CORDARONE [Suspect]
     Dosage: 200 MG, UNK
     Route: 048
     Dates: start: 20100731, end: 20110730
  10. ASPIRIN [Concomitant]
     Dosage: UNK UKN, UNK
  11. GLICLAZIDE [Concomitant]
     Dosage: UNK UKN, UNK
  12. LOPRESSOR [Suspect]
     Dosage: 150 MG, DAILY
     Route: 048
     Dates: start: 20100731, end: 20110730

REACTIONS (2)
  - BRADYCARDIA [None]
  - HYPOTENSION [None]
